FAERS Safety Report 21294626 (Version 2)
Quarter: 2022Q4

REPORT INFORMATION
  Report Type: Report from Study
  Country: US (occurrence: US)
  Receive Date: 20220905
  Receipt Date: 20221124
  Transmission Date: 20230112
  Serious: Yes (Other)
  Sender: FDA-Public Use
  Company Number: US-TAKEDA-2022TUS060860

PATIENT
  Age: 71 Year
  Sex: Female

DRUGS (1)
  1. VEDOLIZUMAB [Suspect]
     Active Substance: VEDOLIZUMAB
     Indication: Crohn^s disease
     Dosage: 300 MILLIGRAM
     Route: 042

REACTIONS (6)
  - Blindness [Unknown]
  - Rheumatoid arthritis [Unknown]
  - Dupuytren^s contracture [Unknown]
  - Mixed connective tissue disease [Unknown]
  - Cataract [Unknown]
  - Trigger finger [Unknown]

NARRATIVE: CASE EVENT DATE: 20211101
